FAERS Safety Report 6561752-8 (Version None)
Quarter: 2010Q1

REPORT INFORMATION
  Report Type: 
  Country: None (occurrence: None)
  Receive Date: 20100130
  Receipt Date: 20091028
  Transmission Date: 20100710
  Serious: No
  Sender: FDA-Public Use
  Company Number: US-ABBOTT-09P-163-0605703-00

PATIENT
  Sex: Female
  Weight: 70.824 kg

DRUGS (8)
  1. HUMIRA [Suspect]
     Indication: RHEUMATOID ARTHRITIS
     Dates: start: 20050903, end: 20091015
  2. LYRICA [Concomitant]
     Indication: DRUG USE FOR UNKNOWN INDICATION
     Dates: start: 20090101
  3. HYDROXYZINE [Concomitant]
     Indication: PRURITUS
     Dates: start: 20090101
  4. OPANA [Concomitant]
     Indication: PAIN
  5. ACIPHEX [Concomitant]
     Indication: DRUG USE FOR UNKNOWN INDICATION
  6. DEPROVERA [Concomitant]
     Indication: HOT FLUSH
  7. SPIRONOLACTONE [Concomitant]
     Indication: DRUG USE FOR UNKNOWN INDICATION
  8. ALBUTEROL [Concomitant]
     Indication: DRUG USE FOR UNKNOWN INDICATION

REACTIONS (3)
  - ARTHRALGIA [None]
  - INJECTION SITE PAIN [None]
  - LARYNGITIS [None]
